FAERS Safety Report 6517794-1 (Version None)
Quarter: 2009Q4

REPORT INFORMATION
  Report Type: 
  Country: None (occurrence: None)
  Receive Date: 20091224
  Receipt Date: 20091215
  Transmission Date: 20100525
  Serious: Yes (Hospitalization, Other)
  Sender: FDA-Public Use
  Company Number: US-ELI_LILLY_AND_COMPANY-US200912003696

PATIENT
  Sex: Female

DRUGS (3)
  1. HUMALOG MIX 75/25 [Suspect]
     Indication: DIABETES MELLITUS
     Dosage: 75 U, 2/D
     Dates: start: 20070101
  2. HUMALOG [Suspect]
     Dosage: 75 U, 2/D
     Dates: start: 20091213, end: 20091214
  3. ANTIHYPERTENSIVES [Concomitant]

REACTIONS (12)
  - AMNESIA [None]
  - BLOOD GLUCOSE DECREASED [None]
  - CEREBROVASCULAR ACCIDENT [None]
  - CONFUSIONAL STATE [None]
  - DIZZINESS [None]
  - DRUG DISPENSING ERROR [None]
  - FALL [None]
  - INTERCEPTED DRUG DISPENSING ERROR [None]
  - KETOSIS [None]
  - SUICIDE ATTEMPT [None]
  - URINARY INCONTINENCE [None]
  - WRONG DRUG ADMINISTERED [None]
